FAERS Safety Report 13498998 (Version 1)
Quarter: 2017Q2

REPORT INFORMATION
  Report Type: Spontaneous
  Country: US (occurrence: US)
  Receive Date: 20170429
  Receipt Date: 20170429
  Transmission Date: 20170830
  Serious: Yes (Disabling)
  Sender: FDA-Public Use
  Company Number: None

PATIENT
  Age: 75 Year
  Sex: Female
  Weight: 53.55 kg

DRUGS (5)
  1. PROBIOTIC [Concomitant]
     Active Substance: PROBIOTICS NOS
  2. MULTIPLE VITAMIN [Concomitant]
     Active Substance: VITAMINS
  3. LEVOTHROID [Concomitant]
     Active Substance: LEVOTHYROXINE SODIUM
  4. OMEGA 3 FISH OIL [Concomitant]
     Active Substance: FISH OIL\OMEGA-3 FATTY ACIDS
  5. RESTASIS [Suspect]
     Active Substance: CYCLOSPORINE
     Indication: DRY EYE
     Dates: start: 20170113, end: 20170401

REACTIONS (1)
  - Abdominal pain [None]

NARRATIVE: CASE EVENT DATE: 20170201
